FAERS Safety Report 17894737 (Version 1)
Quarter: 2020Q2

REPORT INFORMATION
  Report Type: Spontaneous
  Country: US (occurrence: US)
  Receive Date: 20200615
  Receipt Date: 20200615
  Transmission Date: 20200714
  Serious: No
  Sender: FDA-Public Use
  Company Number: US-SA-2020SA147567

PATIENT

DRUGS (6)
  1. ALREX [LOTEPREDNOL ETABONATE] [Concomitant]
  2. TACROLIMUS. [Concomitant]
     Active Substance: TACROLIMUS
  3. DUPIXENT [Suspect]
     Active Substance: DUPILUMAB
     Indication: DERMATITIS ATOPIC
     Dosage: 300 MG, QOW
     Route: 058
     Dates: start: 20191004
  4. PAZEO [Concomitant]
     Active Substance: OLOPATADINE HYDROCHLORIDE
  5. LEVOTHYROXINE. [Concomitant]
     Active Substance: LEVOTHYROXINE
  6. OLOPATADINE. [Concomitant]
     Active Substance: OLOPATADINE

REACTIONS (2)
  - Conjunctivitis allergic [Not Recovered/Not Resolved]
  - Dry eye [Not Recovered/Not Resolved]
